FAERS Safety Report 25305685 (Version 1)
Quarter: 2025Q2

REPORT INFORMATION
  Report Type: Spontaneous
  Country: ES (occurrence: ES)
  Receive Date: 20250513
  Receipt Date: 20250513
  Transmission Date: 20250717
  Serious: Yes (Other)
  Sender: RANBAXY
  Company Number: ES-SUN PHARMACEUTICAL INDUSTRIES INC.-2025R1-506959

PATIENT
  Age: 64 Year
  Sex: Female

DRUGS (1)
  1. OXYMETAZOLINE [Suspect]
     Active Substance: OXYMETAZOLINE
     Indication: Rhinitis
     Dosage: 4-6 TIMES, DAILY
     Route: 045

REACTIONS (2)
  - Drug abuse [Recovering/Resolving]
  - Pneumonia lipoid [Recovering/Resolving]
